FAERS Safety Report 9860619 (Version 2)
Quarter: 2014Q1

REPORT INFORMATION
  Report Type: Spontaneous
  Country: BR (occurrence: BR)
  Receive Date: 20140202
  Receipt Date: 20140202
  Transmission Date: 20141002
  Serious: No
  Sender: FDA-Public Use
  Company Number: BR-ALLERGAN-1214834US

PATIENT
  Age: 63 Year
  Sex: Male

DRUGS (3)
  1. BOTOX [Suspect]
     Indication: SKIN WRINKLING
     Dosage: 15 UNITS, SINGLE
     Route: 030
     Dates: start: 20121009, end: 20121009
  2. BOTOX [Suspect]
     Indication: SKIN WRINKLING
     Dosage: 25 UNITS, SINGLE
     Route: 030
     Dates: start: 20121009, end: 20121009
  3. BOTOX [Suspect]
     Indication: SKIN WRINKLING
     Dosage: 10 UNITS, SINGLE
     Route: 030
     Dates: start: 20121009, end: 20121009

REACTIONS (10)
  - Incorrect dose administered [Unknown]
  - Facial paresis [Recovered/Resolved]
  - Facial paresis [Recovered/Resolved]
  - VIIth nerve paralysis [Recovered/Resolved]
  - Lagophthalmos [Recovered/Resolved]
  - Eye irritation [Recovered/Resolved]
  - Lacrimation decreased [Recovered/Resolved]
  - Ocular hyperaemia [Recovered/Resolved]
  - Facial paresis [Recovered/Resolved]
  - Mastication disorder [Recovered/Resolved]
